FAERS Safety Report 17622587 (Version 1)
Quarter: 2020Q2

REPORT INFORMATION
  Report Type: Spontaneous
  Country: US (occurrence: US)
  Receive Date: 20200403
  Receipt Date: 20200403
  Transmission Date: 20200713
  Serious: No
  Sender: FDA-Public Use
  Company Number: None

PATIENT
  Age: 77 Year
  Sex: Female
  Weight: 91.8 kg

DRUGS (3)
  1. EFUDEX [Suspect]
     Active Substance: FLUOROURACIL
     Indication: PRECANCEROUS CONDITION
     Dates: start: 20190404, end: 20190415
  2. ENALAPRIL [Concomitant]
     Active Substance: ENALAPRIL
  3. METOPROLOL. [Concomitant]
     Active Substance: METOPROLOL

REACTIONS (7)
  - Oral discomfort [None]
  - Hypoaesthesia [None]
  - Wound secretion [None]
  - Lip swelling [None]
  - Drooling [None]
  - Lip scab [None]
  - Hypoaesthesia oral [None]

NARRATIVE: CASE EVENT DATE: 20190417
